FAERS Safety Report 8042042-3 (Version None)
Quarter: 2012Q1

REPORT INFORMATION
  Report Type: 
  Country: None (occurrence: None)
  Receive Date: 20120112
  Receipt Date: 20120109
  Transmission Date: 20120608
  Serious: Yes (Life-Threatening, Hospitalization, Other)
  Sender: FDA-Public Use
  Company Number: CA-BAYER-2011-111609

PATIENT
  Age: 15 Year
  Sex: Female
  Weight: 47.619 kg

DRUGS (3)
  1. REFRESH TEARS [Concomitant]
  2. FLUOROMETHOLONE [Concomitant]
     Dosage: 1 GTT, HS
     Route: 047
     Dates: start: 20100101
  3. YASMIN [Suspect]
     Indication: ACNE
     Dosage: UNK
     Route: 048
     Dates: start: 20100701, end: 20110503

REACTIONS (4)
  - PULMONARY EMBOLISM [None]
  - DYSPNOEA [None]
  - FATIGUE [None]
  - TACHYCARDIA [None]
